FAERS Safety Report 7382047-9 (Version None)
Quarter: 2011Q1

REPORT INFORMATION
  Report Type: 
  Country: None (occurrence: None)
  Receive Date: 20110329
  Receipt Date: 20101207
  Transmission Date: 20110831
  Serious: Yes (Hospitalization, Other)
  Sender: FDA-Public Use
  Company Number: US-BAYER-201030421NA

PATIENT
  Sex: Female
  Weight: 96 kg

DRUGS (3)
  1. OCELLA [Suspect]
     Indication: ORAL CONTRACEPTION
     Dosage: UNK
     Dates: start: 20080101, end: 20090101
  2. YASMIN [Suspect]
     Indication: ORAL CONTRACEPTION
     Dosage: UNK
     Dates: start: 20010101, end: 20080101
  3. IMITREX [Concomitant]
     Indication: MIGRAINE
     Dosage: UNK
     Dates: start: 19990101

REACTIONS (10)
  - GALLBLADDER CHOLESTEROLOSIS [None]
  - DISCOMFORT [None]
  - NAUSEA [None]
  - VOMITING [None]
  - GALLBLADDER INJURY [None]
  - CHOLECYSTITIS CHRONIC [None]
  - DEHYDRATION [None]
  - DIARRHOEA [None]
  - BILIARY DYSKINESIA [None]
  - ABDOMINAL PAIN [None]
